FAERS Safety Report 21105267 (Version 7)
Quarter: 2022Q3

REPORT INFORMATION
  Report Type: Report from Study
  Country: BR (occurrence: None)
  Receive Date: 20220720
  Receipt Date: 20220930
  Transmission Date: 20221027
  Serious: No
  Sender: FDA-Public Use
  Company Number: BR-Eisai Medical Research-EC-2022-119385

PATIENT
  Age: 83 Year
  Sex: Female
  Weight: 76.5 kg

DRUGS (15)
  1. LENVATINIB [Suspect]
     Active Substance: LENVATINIB
     Indication: Clear cell renal cell carcinoma
     Route: 048
     Dates: start: 20220704, end: 20220707
  2. LENVATINIB [Suspect]
     Active Substance: LENVATINIB
     Dosage: STARTING DOSE AT 14 MG, FLUCTUATED DOSAGE
     Route: 048
     Dates: start: 20220713
  3. PEMBROLIZUMAB [Suspect]
     Active Substance: PEMBROLIZUMAB
     Indication: Clear cell renal cell carcinoma
     Route: 041
     Dates: start: 20220704, end: 20220704
  4. PEMBROLIZUMAB [Suspect]
     Active Substance: PEMBROLIZUMAB
     Route: 041
     Dates: start: 20220816
  5. NEBIVOLOL [Concomitant]
     Active Substance: NEBIVOLOL
     Dates: start: 20190215
  6. TRAZODONE HYDROCHLORIDE [Concomitant]
     Active Substance: TRAZODONE HYDROCHLORIDE
     Dates: start: 20200506
  7. ROSUVASTATIN [Concomitant]
     Active Substance: ROSUVASTATIN
     Dates: start: 20200506
  8. BENSERAZIDE\LEVODOPA [Concomitant]
     Active Substance: BENSERAZIDE\LEVODOPA
     Dates: start: 20201112
  9. MEMANTINE [Concomitant]
     Active Substance: MEMANTINE
     Dates: start: 20201112
  10. ECASIL [Concomitant]
     Dates: start: 20210201
  11. CANDESARTAN [Concomitant]
     Active Substance: CANDESARTAN
     Dates: start: 20210506
  12. AMLODIPINE BESYLATE [Concomitant]
     Active Substance: AMLODIPINE BESYLATE
     Dates: start: 20210506
  13. DULOXETINE HYDROCHLORIDE [Concomitant]
     Active Substance: DULOXETINE HYDROCHLORIDE
     Dates: start: 20220210
  14. DIOSMIN [Concomitant]
     Active Substance: DIOSMIN
     Dates: start: 20220217
  15. YEAST [SACCHAROMYCES CEREVISIAE] [Concomitant]
     Dates: start: 20200116

REACTIONS (1)
  - Fatigue [Recovered/Resolved]

NARRATIVE: CASE EVENT DATE: 20220708
